FAERS Safety Report 8560575-8 (Version None)
Quarter: 2012Q3

REPORT INFORMATION
  Report Type: 
  Country: None (occurrence: None)
  Receive Date: 20120802
  Receipt Date: 20120730
  Transmission Date: 20120928
  Serious: Yes (Death)
  Sender: FDA-Public Use
  Company Number: AU-PURDUE-USA-2012-0090763

PATIENT
  Age: 31 Year
  Sex: Male

DRUGS (1)
  1. MORPHINE SULFATE [Suspect]
     Indication: PRODUCT USED FOR UNKNOWN INDICATION
     Dosage: UNK
     Route: 048
     Dates: start: 20030601, end: 20030601

REACTIONS (2)
  - OVERDOSE [None]
  - VICTIM OF HOMICIDE [None]
